FAERS Safety Report 16993527 (Version 2)
Quarter: 2022Q1

REPORT INFORMATION
  Report Type: Report from Study
  Country: US (occurrence: US)
  Receive Date: 20191105
  Receipt Date: 20220106
  Transmission Date: 20220423
  Serious: Yes (Hospitalization, Other)
  Sender: FDA-Public Use
  Company Number: US-PFIZER INC-2019463707

PATIENT
  Age: 23 Month
  Sex: Male
  Weight: 10 kg

DRUGS (12)
  1. TEMSIROLIMUS [Suspect]
     Active Substance: TEMSIROLIMUS
     Indication: Alveolar rhabdomyosarcoma
     Dosage: 15 MG/M2, CYCLIC (CYCLES 1-4/IV OVER 30-60 MINUTES ON DAYS 1, 8, AND 15)
     Route: 042
     Dates: start: 20190329
  2. TEMSIROLIMUS [Suspect]
     Active Substance: TEMSIROLIMUS
     Dosage: 15 MG/M2, CYCLIC(CYCLES 5-10/IV OVER 30-60 MINUTES ON DAYS 1, 8, AND 15 OF CYCLES 8, 9 AND 10)
     Route: 042
     Dates: end: 20191007
  3. CAMPTOSAR [Suspect]
     Active Substance: IRINOTECAN HYDROCHLORIDE
     Indication: Alveolar rhabdomyosarcoma
     Dosage: UNK UNK, CYCLIC (CYCLES 1-4/PER DOSING TABLE IV OVER 90 MINUTES ON DAYS 1-5 OF CYCLES 2 AND 4)
     Route: 042
     Dates: start: 20190329
  4. CAMPTOSAR [Suspect]
     Active Substance: IRINOTECAN HYDROCHLORIDE
     Dosage: UNK, CYCLIC (CYCLES 5-10/PER DOSING TABLE IV OVER 90 MINUTES ON DAYS 1-5 OF CYCLES 6, 7 AND 9)
     Route: 042
     Dates: end: 20191011
  5. VINCRISTINE SULFATE [Suspect]
     Active Substance: VINCRISTINE SULFATE
     Indication: Alveolar rhabdomyosarcoma
     Dosage: CYCLIC(CYCLES 1-4/PER DOSING TABLE IV OVER 1 MINUTE OR INFUSION VIA MINIBAG ON DAYS 1, 8, AND 15)
     Route: 042
     Dates: start: 20190329
  6. VINCRISTINE SULFATE [Suspect]
     Active Substance: VINCRISTINE SULFATE
     Dosage: CYCLIC(CYCLES 5-10/IV OVER 1 MINUTE OR INFUSION VIA MINIBAG ON DAY 1 OF CYCLES 5 AND 10)
     Route: 042
  7. VINCRISTINE SULFATE [Suspect]
     Active Substance: VINCRISTINE SULFATE
     Dosage: CYCLES 5-10/IV OVER 1 MINUTE OR INFUSION VIA MINIBAG ON DAYS 1, 8 AND 15 OF CYCLE 8
     Route: 042
  8. VINCRISTINE SULFATE [Suspect]
     Active Substance: VINCRISTINE SULFATE
     Dosage: CYCLES 5-10/IV OVER 1 MINUTE OR INFUSION VIA MINIBAG ON DAYS 1 AND 8 OF CYCLES 6 AND 7 AND 9
     Route: 042
     Dates: end: 20191007
  9. CYCLOPHOSPHAMIDE [Suspect]
     Active Substance: CYCLOPHOSPHAMIDE
     Indication: Alveolar rhabdomyosarcoma
     Dosage: UNK UNK, CYCLIC(CYCLES 1-4/PER DOSING TABLE/IV OVER 60 MINUTES ON DAY 1 OF CYCLES 1 AND 3)
     Route: 042
     Dates: start: 20190329
  10. CYCLOPHOSPHAMIDE [Suspect]
     Active Substance: CYCLOPHOSPHAMIDE
     Dosage: UNK UNK, CYCLIC(CYCLES 5-10/PER DOSING TABLE/IV OVER 60 MINUTES ON DAY 1 OF CYCLES 5, 8 AND 10)
     Route: 042
     Dates: end: 20190916
  11. DACTINOMYCIN [Suspect]
     Active Substance: DACTINOMYCIN
     Indication: Alveolar rhabdomyosarcoma
     Dosage: UNK UNK, CYCLIC(CYCLES 1-4/PER DOSING TABLE/IV OVER 1-5 MINUTES ON DAY 1 OF CYCLES 1 AND 3)
     Route: 042
     Dates: start: 20190329
  12. DACTINOMYCIN [Suspect]
     Active Substance: DACTINOMYCIN
     Dosage: UNK UNK, CYCLIC(CYCLES 5-10/PER DOSING TABLE/OVER 1-5 MINUTES ON DAY 1 OF CYCLES 5, 8 AND 10)
     Route: 042
     Dates: end: 20190916

REACTIONS (3)
  - Diarrhoea [Recovered/Resolved]
  - Clostridium difficile colitis [Recovered/Resolved]
  - Escherichia infection [Recovered/Resolved]

NARRATIVE: CASE EVENT DATE: 20191013
